FAERS Safety Report 14801440 (Version 3)
Quarter: 2018Q2

REPORT INFORMATION
  Report Type: Spontaneous
  Country: HN (occurrence: HN)
  Receive Date: 20180424
  Receipt Date: 20180503
  Transmission Date: 20180711
  Serious: No
  Sender: FDA-Public Use
  Company Number: HN-DSJP-DSE-2018-115597

PATIENT

DRUGS (3)
  1. CALCIUM DOBESILATE [Concomitant]
     Active Substance: CALCIUM DOBESILATE
     Indication: PERIPHERAL VENOUS DISEASE
     Dosage: 500 MG, QD
     Dates: end: 201801
  2. BENICAR HCT [Suspect]
     Active Substance: HYDROCHLOROTHIAZIDE\OLMESARTAN MEDOXOMIL
     Indication: HYPERTENSION
     Dosage: 40/12.5, QD
     Route: 048
     Dates: start: 201501, end: 20180115
  3. ATENOLOL ACIS [Concomitant]
     Indication: HYPERTENSION
     Dosage: 50 MG, QD
     Dates: end: 201801

REACTIONS (2)
  - Fall [Recovered/Resolved]
  - Drug dose omission [Recovered/Resolved]

NARRATIVE: CASE EVENT DATE: 20180115
